FAERS Safety Report 21764693 (Version 6)
Quarter: 2023Q1

REPORT INFORMATION
  Report Type: Report from Study
  Country: BR (occurrence: BR)
  Receive Date: 20221222
  Receipt Date: 20230131
  Transmission Date: 20230417
  Serious: Yes (Other)
  Sender: FDA-Public Use
  Company Number: BR-CELLTRION INC.-2022BR021464

PATIENT

DRUGS (14)
  1. INFLIXIMAB [Suspect]
     Active Substance: INFLIXIMAB
     Indication: Crohn^s disease
     Dosage: EVERY 1 MONTH (UNK, MONTHLY)
     Route: 042
  2. INFLIXIMAB [Suspect]
     Active Substance: INFLIXIMAB
     Dosage: UNK, BIMONTHLY, 4 AMPOULES EVERY 2 MONTHS
     Route: 042
     Dates: start: 2022
  3. INFLIXIMAB [Suspect]
     Active Substance: INFLIXIMAB
     Dosage: UNK, BIMONTHLY, 4 AMPOULES EVERY 2 MONTHS
     Route: 042
     Dates: start: 202210, end: 20221219
  4. INFLIXIMAB [Suspect]
     Active Substance: INFLIXIMAB
     Dosage: UNK, BIMONTHLY, 4 AMPOULES EVERY 2 MONTHS
     Route: 042
     Dates: start: 20221219
  5. PREGABALIN [Suspect]
     Active Substance: PREGABALIN
     Indication: Insomnia
     Dosage: 150 MILLIGRAM, QD, 2 PILLS A DAY
     Route: 048
     Dates: start: 2022
  6. PREGABALIN [Suspect]
     Active Substance: PREGABALIN
     Indication: Fibromyalgia
     Dosage: UNK
     Route: 065
  7. PREGABALIN [Suspect]
     Active Substance: PREGABALIN
     Dosage: UNK
     Route: 048
  8. MESALAMINE [Suspect]
     Active Substance: MESALAMINE
     Indication: Crohn^s disease
     Dosage: 2400 MILLIGRAM, TID 3 PILLS A DAY
     Route: 048
     Dates: start: 2022
  9. MESALAMINE [Suspect]
     Active Substance: MESALAMINE
     Dosage: 2400 MILLIGRAM, QD
     Route: 048
     Dates: start: 2022
  10. Zetron [Concomitant]
     Indication: Depression
     Dosage: 150 MILLIGRAM, QD
     Route: 048
     Dates: start: 2012
  11. SIMVASTATIN [Concomitant]
     Active Substance: SIMVASTATIN
     Indication: Blood cholesterol increased
     Dosage: 20 MILLIGRAM, QD
     Route: 048
     Dates: start: 2012
  12. Revoc [Concomitant]
     Indication: Depression
     Dosage: 100 MILLIGRAM, QD
     Route: 048
     Dates: start: 2012
  13. FLUNITRAZEPAM [Concomitant]
     Active Substance: FLUNITRAZEPAM
     Indication: Insomnia
     Dosage: 1 MILLIGRAM, QD
     Route: 048
     Dates: start: 2017
  14. VITAMIN D [Concomitant]
     Active Substance: VITAMIN D NOS
     Indication: Osteopenia
     Dosage: 2000 INTERNATIONAL UNIT, QD
     Route: 048
     Dates: start: 2002

REACTIONS (16)
  - Crohn^s disease [Unknown]
  - COVID-19 [Unknown]
  - Pneumonia [Unknown]
  - Gastrointestinal disorder [Unknown]
  - Fibromyalgia [Unknown]
  - Oesophagitis [Unknown]
  - Colitis [Unknown]
  - Tendonitis [Unknown]
  - Discouragement [Unknown]
  - Sinusitis [Unknown]
  - Arthralgia [Unknown]
  - Back pain [Unknown]
  - Fatigue [Unknown]
  - Diarrhoea [Unknown]
  - Off label use [Unknown]
  - Treatment delayed [Unknown]

NARRATIVE: CASE EVENT DATE: 20220101
